FAERS Safety Report 20561680 (Version 1)
Quarter: 2022Q1

REPORT INFORMATION
  Report Type: Spontaneous
  Country: US (occurrence: None)
  Receive Date: 20220307
  Receipt Date: 20220307
  Transmission Date: 20220423
  Serious: Yes (Hospitalization)
  Sender: FDA-Public Use
  Company Number: None

PATIENT
  Sex: Female

DRUGS (1)
  1. FORTEO [Suspect]
     Active Substance: TERIPARATIDE
     Indication: Product used for unknown indication
     Dosage: 620 MCG/2.48ML? ?INJECT 20 MCG (0.08 ML) UNDER THE SKIN (SUBCUTANEOUS INJECTION) ONE TIME A DAY
     Route: 058
     Dates: start: 20200902

REACTIONS (1)
  - Eye operation [None]
